FAERS Safety Report 12509020 (Version 1)
Quarter: 2016Q2

REPORT INFORMATION
  Report Type: Spontaneous
  Country: RU (occurrence: RU)
  Receive Date: 20160629
  Receipt Date: 20160629
  Transmission Date: 20160815
  Serious: Yes (Other)
  Sender: FDA-Public Use
  Company Number: RU-ASTRAZENECA-2016SE68604

PATIENT
  Age: 64 Year
  Sex: Female

DRUGS (10)
  1. METFORMIN [Concomitant]
     Active Substance: METFORMIN HYDROCHLORIDE
     Dosage: 1000.0MG UNKNOWN
  2. LANTUS [Concomitant]
     Active Substance: INSULIN GLARGINE
  3. PREGABALINE [Concomitant]
     Active Substance: PREGABALIN
     Indication: TREMOR
  4. PREGABALINE [Concomitant]
     Active Substance: PREGABALIN
     Indication: PAIN IN EXTREMITY
  5. DIURETIC [Concomitant]
     Active Substance: UNSPECIFIED INGREDIENT
  6. HUMALOG [Concomitant]
     Active Substance: INSULIN LISPRO
  7. CALCIUM [Concomitant]
     Active Substance: CALCIUM
     Indication: TREMOR
  8. FORXIGA [Suspect]
     Active Substance: DAPAGLIFLOZIN
     Indication: TYPE 2 DIABETES MELLITUS
     Route: 048
     Dates: start: 201603, end: 20160620
  9. CALCIUM [Concomitant]
     Active Substance: CALCIUM
     Indication: PAIN IN EXTREMITY
  10. ACE INHIBITOR [Concomitant]
     Active Substance: UNSPECIFIED INGREDIENT

REACTIONS (2)
  - Tremor [Unknown]
  - Oedema peripheral [Unknown]

NARRATIVE: CASE EVENT DATE: 2016
